FAERS Safety Report 9268468 (Version 1)
Quarter: 2013Q2

REPORT INFORMATION
  Report Type: Spontaneous
  Country: US (occurrence: US)
  Receive Date: 20130502
  Receipt Date: 20130502
  Transmission Date: 20140414
  Serious: No
  Sender: FDA-Public Use
  Company Number: US-ALEXION-A201202231

PATIENT
  Sex: Female
  Weight: 60 kg

DRUGS (3)
  1. SOLIRIS 300MG [Suspect]
     Indication: PAROXYSMAL NOCTURNAL HAEMOGLOBINURIA
     Dosage: 600 MG, UNK
     Route: 042
     Dates: start: 20121116
  2. BENADRYL [Concomitant]
     Indication: PREMEDICATION
     Dosage: 25 MG, 30 MIN BEFORE INFUSIONS
     Route: 042
  3. DECADRON [Concomitant]
     Indication: PREMEDICATION
     Dosage: 20 MG, 30 MIN BEFORE INFUSIONS
     Route: 042

REACTIONS (4)
  - Hypoaesthesia [Recovered/Resolved]
  - Erythema [Recovered/Resolved]
  - Palpitations [Recovered/Resolved]
  - Dyspnoea [Recovered/Resolved]
